FAERS Safety Report 20942306 (Version 4)
Quarter: 2024Q2

REPORT INFORMATION
  Report Type: Spontaneous
  Country: US (occurrence: US)
  Receive Date: 20220610
  Receipt Date: 20240507
  Transmission Date: 20240716
  Serious: Yes (Disabling, Other)
  Sender: FDA-Public Use
  Company Number: US-JNJFOC-20220607816

PATIENT
  Age: 29 Year
  Sex: Female

DRUGS (1)
  1. ELMIRON [Suspect]
     Active Substance: PENTOSAN POLYSULFATE SODIUM
     Indication: Cystitis interstitial
     Dosage: 100 MG/DAY, THEN 200 MG 3X/DAY FOR A SHORT TIME
     Route: 048
     Dates: start: 19991110, end: 20200725

REACTIONS (13)
  - Deafness [Unknown]
  - Pigmentary maculopathy [Not Recovered/Not Resolved]
  - Abdominal distension [Unknown]
  - Arthralgia [Unknown]
  - Irritable bowel syndrome [Unknown]
  - Dyspareunia [Unknown]
  - Lacrimation increased [Unknown]
  - Alopecia [Unknown]
  - Depression [Unknown]
  - Dizziness [Unknown]
  - Headache [Not Recovered/Not Resolved]
  - Cystitis interstitial [Unknown]
  - Off label use [Unknown]

NARRATIVE: CASE EVENT DATE: 19991110
